FAERS Safety Report 7741702-9 (Version None)
Quarter: 2011Q3

REPORT INFORMATION
  Report Type: 
  Country: None (occurrence: None)
  Receive Date: 20110912
  Receipt Date: 20110901
  Transmission Date: 20111222
  Serious: Yes (Other)
  Sender: FDA-Public Use
  Company Number: CH-BIOGENIDEC-2011BI024990

PATIENT
  Age: 61 Year
  Sex: Female

DRUGS (5)
  1. LIORESAL [Concomitant]
     Route: 048
  2. TYSABRI [Suspect]
     Indication: PRODUCT USED FOR UNKNOWN INDICATION
     Route: 042
     Dates: start: 20110217, end: 20110609
  3. LEXOTANIL [Concomitant]
     Route: 048
  4. TIZANIDINE HCL [Concomitant]
     Route: 048
  5. CLONAZEPAM [Concomitant]
     Indication: PAIN
     Route: 048

REACTIONS (2)
  - B-CELL LYMPHOMA [None]
  - LYMPHOCYTOSIS [None]
